FAERS Safety Report 4273672-2 (Version None)
Quarter: 2004Q1

REPORT INFORMATION
  Report Type: 
  Country: None (occurrence: None)
  Receive Date: 20040114
  Receipt Date: 20040112
  Transmission Date: 20041129
  Serious: Yes (Death)
  Sender: FDA-Public Use
  Company Number: A044-002-004800

PATIENT
  Sex: Male

DRUGS (3)
  1. ARICEPT [Suspect]
     Indication: DEMENTIA
     Dosage: ORAL
     Route: 048
     Dates: start: 20031101, end: 20031201
  2. RYTHMOL [Concomitant]
  3. VALSARTAN (VALSARTAN) [Concomitant]

REACTIONS (2)
  - FEELING ABNORMAL [None]
  - SUDDEN DEATH [None]
